FAERS Safety Report 10488699 (Version 1)
Quarter: 2014Q4

REPORT INFORMATION
  Report Type: Spontaneous
  Country: US (occurrence: None)
  Receive Date: 20141001
  Receipt Date: 20141001
  Transmission Date: 20150528
  Serious: Yes (Other)
  Sender: FDA-Public Use
  Company Number: None

PATIENT
  Age: 9 Year
  Sex: Male

DRUGS (3)
  1. SEROQUEL [Suspect]
     Active Substance: QUETIAPINE FUMARATE
     Indication: MOEBIUS II SYNDROME
     Dosage: ONCE TID PO
     Route: 048
     Dates: start: 20100520
  2. SEROQUEL [Suspect]
     Active Substance: QUETIAPINE FUMARATE
     Indication: MOEBIUS II SYNDROME
     Dosage: ONCE QD PO
     Route: 048
     Dates: start: 20100520
  3. SEROQUEL [Suspect]
     Active Substance: QUETIAPINE FUMARATE
     Indication: ENCEPHALOPATHY
     Dosage: ONCE QD PO
     Route: 048
     Dates: start: 20100520

REACTIONS (3)
  - Agitation [None]
  - Rash macular [None]
  - Dyskinesia [None]

NARRATIVE: CASE EVENT DATE: 20130318
